FAERS Safety Report 4984028-9 (Version None)
Quarter: 2006Q1

REPORT INFORMATION
  Report Type: 
  Country: None (occurrence: None)
  Receive Date: 20060301
  Receipt Date: 20051025
  Transmission Date: 20060701
  Serious: Yes (Other)
  Sender: FDA-Public Use
  Company Number: S05-USA-04809-01

PATIENT

DRUGS (1)
  1. NAMENDA [Suspect]

REACTIONS (1)
  - TARDIVE DYSKINESIA [None]
